FAERS Safety Report 5400088-5 (Version None)
Quarter: 2007Q3

REPORT INFORMATION
  Report Type: 
  Country: None (occurrence: None)
  Receive Date: 20070726
  Receipt Date: 20070726
  Transmission Date: 20080115
  Serious: Yes (Hospitalization)
  Sender: FDA-Public Use
  Company Number: None

PATIENT
  Age: 68 Year
  Sex: Female
  Weight: 84 kg

DRUGS (20)
  1. LINEZOLID [Suspect]
     Dosage: 600MG Q 12 H
  2. IPRATROPIUM BROMIDE [Concomitant]
  3. MULTI-VITAMIN [Concomitant]
  4. DIGOXIN [Concomitant]
  5. ZINC SUFLATE [Concomitant]
  6. VITAMIN E [Concomitant]
  7. LEVOCARNITINE [Concomitant]
  8. ALBUTEROL [Concomitant]
  9. NYSTATIN [Concomitant]
  10. VITAMIN B COMPLEX CAP [Concomitant]
  11. INSULIN [Concomitant]
  12. FAMOTIDINE [Concomitant]
  13. EROCALCIFEROL [Concomitant]
  14. DIPHENHYDRAMINE HCL [Concomitant]
  15. CARVEDILOL [Concomitant]
  16. DARBEPOETIN ALFA [Concomitant]
  17. LEVOTHYROXINE SODIUM [Concomitant]
  18. ALBUMIN (HUMAN) [Concomitant]
  19. UNASYN [Concomitant]
  20. HEPARIN [Concomitant]

REACTIONS (1)
  - PLATELET COUNT DECREASED [None]
